FAERS Safety Report 14111680 (Version 1)
Quarter: 2017Q4

REPORT INFORMATION
  Report Type: Spontaneous
  Country: RU (occurrence: RU)
  Receive Date: 20171020
  Receipt Date: 20171020
  Transmission Date: 20180321
  Serious: Yes (Hospitalization, Other)
  Sender: FDA-Public Use
  Company Number: RU-BAYER-2017-195987

PATIENT
  Age: 30 Year
  Sex: Female

DRUGS (1)
  1. YAZ [Suspect]
     Active Substance: DROSPIRENONE\ETHINYL ESTRADIOL
     Dosage: UNK
     Route: 048

REACTIONS (7)
  - Loss of consciousness [None]
  - Pelvic venous thrombosis [None]
  - Gait disturbance [None]
  - Skin discolouration [None]
  - Back pain [None]
  - Pain in extremity [None]
  - Swelling [None]
